FAERS Safety Report 24411910 (Version 1)
Quarter: 2024Q4

REPORT INFORMATION
  Report Type: Spontaneous
  Country: US (occurrence: None)
  Receive Date: 20241007
  Receipt Date: 20241007
  Transmission Date: 20250114
  Serious: Yes (Other)
  Sender: Public
  Company Number: None

PATIENT
  Age: 62 Year
  Sex: Female

DRUGS (1)
  1. TALTZ [Suspect]
     Active Substance: IXEKIZUMAB
     Indication: Psoriasis
     Route: 058
     Dates: start: 20240422, end: 20240930

REACTIONS (7)
  - Peripheral swelling [None]
  - Swelling face [None]
  - Pruritus [None]
  - Erythema [None]
  - Headache [None]
  - Swelling [None]
  - Swelling [None]
